FAERS Safety Report 9999129 (Version 2)
Quarter: 2014Q2

REPORT INFORMATION
  Report Type: Report from Study
  Country: SG (occurrence: SG)
  Receive Date: 20140312
  Receipt Date: 20140410
  Transmission Date: 20141212
  Serious: No
  Sender: FDA-Public Use
  Company Number: SG-JNJFOC-20140116017

PATIENT
  Age: 56 Year
  Sex: Male

DRUGS (5)
  1. USTEKINUMAB [Suspect]
     Indication: PSORIASIS
     Route: 058
     Dates: start: 20111213, end: 20120706
  2. ACITRETIN [Concomitant]
     Route: 048
     Dates: start: 20111213
  3. CEPHALEXIN [Concomitant]
     Route: 048
     Dates: start: 20111216, end: 20120106
  4. CIPROFLOXACIN [Concomitant]
     Route: 048
     Dates: start: 20111216, end: 20111223
  5. BETAMETHASONE CREAM [Concomitant]
     Route: 061
     Dates: start: 20120216

REACTIONS (2)
  - Psoriasis [Recovered/Resolved]
  - Cellulitis [Recovered/Resolved]
